FAERS Safety Report 9587466 (Version 2)
Quarter: 2013Q4

REPORT INFORMATION
  Report Type: Spontaneous
  Country: GB (occurrence: GB)
  Receive Date: 20131003
  Receipt Date: 20131015
  Transmission Date: 20140711
  Serious: Yes (Hospitalization, Other)
  Sender: FDA-Public Use
  Company Number: GB-PFIZER INC-2013278053

PATIENT
  Age: 76 Year
  Sex: Female

DRUGS (6)
  1. ATORVASTATIN [Suspect]
     Indication: BLOOD CHOLESTEROL INCREASED
     Dosage: UNK
     Route: 065
  2. BISOPROLOL FUMARATE [Suspect]
     Dosage: UNK
     Route: 065
  3. CITALOPRAM [Suspect]
     Dosage: UNK
     Route: 065
  4. BRILIQUE [Suspect]
     Indication: THROMBOSIS PROPHYLAXIS
     Dosage: 90 MG, 2X/DAY
     Route: 048
     Dates: start: 20130805
  5. BRILIQUE [Suspect]
     Indication: ACUTE CORONARY SYNDROME
  6. ASPIRIN [Suspect]
     Dosage: UNK
     Route: 048

REACTIONS (3)
  - Panic attack [Not Recovered/Not Resolved]
  - Atrial fibrillation [Not Recovered/Not Resolved]
  - Chest discomfort [Unknown]
